FAERS Safety Report 5091805-5 (Version None)
Quarter: 2006Q3

REPORT INFORMATION
  Report Type: 
  Country: None (occurrence: None)
  Receive Date: 20060829
  Receipt Date: 20060607
  Transmission Date: 20061208
  Serious: Yes (Other)
  Sender: FDA-Public Use
  Company Number: US-BRISTOL-MYERS SQUIBB COMPANY-13404165

PATIENT
  Age: 49 Year
  Weight: 113 kg

DRUGS (1)
  1. ERBITUX [Suspect]
     Indication: COLON CANCER
     Route: 041
     Dates: start: 20060605, end: 20060605

REACTIONS (4)
  - BRONCHOSPASM [None]
  - NAUSEA [None]
  - URTICARIA [None]
  - VOMITING [None]
